FAERS Safety Report 8402395-0 (Version None)
Quarter: 2012Q2

REPORT INFORMATION
  Report Type: 
  Country: None (occurrence: None)
  Receive Date: 20120601
  Receipt Date: 20120529
  Transmission Date: 20120825
  Serious: Yes (Hospitalization, Other)
  Sender: FDA-Public Use
  Company Number: US-PFIZER INC-2010092631

PATIENT
  Sex: Female
  Weight: 68.027 kg

DRUGS (26)
  1. NORVASC [Interacting]
     Indication: HYPERTENSION
     Dosage: 2.5 MG, 1X/DAY
     Dates: start: 19940101
  2. VALSARTAN [Interacting]
     Dosage: UNK
  3. LISINOPRIL [Interacting]
     Dosage: UNK
  4. CIPROFLOXACIN [Interacting]
     Dosage: UNK
  5. FUROSEMIDE [Interacting]
  6. HYDROCHLOROTHIAZIDE [Interacting]
     Dosage: UNK
  7. DEPAKOTE [Interacting]
     Indication: CONVULSION
     Dosage: UNK
     Dates: start: 19950101, end: 20040101
  8. TOPROL-XL [Interacting]
     Indication: HEART RATE ABNORMAL
     Dosage: 25 MG, DAILY
  9. LEVOTHYROXINE SODIUM [Concomitant]
     Dosage: UNK
  10. CLONIDINE [Concomitant]
     Indication: BLOOD PRESSURE ABNORMAL
     Dosage: 0.5 MG, 3X/DAY
     Route: 048
  11. BENICAR [Interacting]
     Indication: HYPERTENSION
     Dosage: UNK
  12. ATACAND [Interacting]
     Indication: RENAL DISORDER
     Dosage: 32 MG, 1X/DAY
     Dates: start: 19950101
  13. LEVAQUIN [Interacting]
     Dosage: UNK
  14. TOPROL-XL [Interacting]
     Indication: FLUSHING
  15. MACROBID [Interacting]
     Dosage: UNK
  16. BACTRIM [Interacting]
     Dosage: UNK
  17. NORVASC [Interacting]
     Dosage: 5 MG, DAILY
     Dates: start: 19970101
  18. NORVASC [Interacting]
     Dosage: 5 MG, 2X/DAY
     Dates: start: 20100101
  19. DILANTIN [Interacting]
     Indication: CONVULSION
     Dosage: UNK
     Dates: start: 19950101
  20. XANAX [Interacting]
     Dosage: 1/2 TABLET QD
  21. CARDIZEM [Interacting]
     Dosage: UNK
  22. AVAPRO [Interacting]
     Indication: HYPERTENSION
     Dosage: UNK
  23. NEBIVOLOL [Interacting]
     Dosage: UNK
  24. REGLAN [Interacting]
     Dosage: UNK
  25. LIDOCAINE HCL [Suspect]
     Indication: INGROWING NAIL
     Dosage: UNK
     Dates: start: 20100513, end: 20100513
  26. LOSARTAN POTASSIUM [Interacting]
     Dosage: UNK

REACTIONS (20)
  - BURNING SENSATION [None]
  - TOE OPERATION [None]
  - INGROWING NAIL [None]
  - BLOOD COUNT ABNORMAL [None]
  - DRUG INEFFECTIVE [None]
  - CHOLECYSTECTOMY [None]
  - LOSS OF CONSCIOUSNESS [None]
  - ARTERIOGRAM CORONARY ABNORMAL [None]
  - DIZZINESS [None]
  - FALL [None]
  - CYSTITIS [None]
  - PALPITATIONS [None]
  - CONVULSION [None]
  - FEELING HOT [None]
  - WEIGHT DECREASED [None]
  - GASTRIC DISORDER [None]
  - DRUG INTERACTION [None]
  - FULL BLOOD COUNT DECREASED [None]
  - HYPERTENSION [None]
  - HEADACHE [None]
